FAERS Safety Report 24582763 (Version 1)
Quarter: 2024Q4

REPORT INFORMATION
  Report Type: Spontaneous
  Country: US (occurrence: US)
  Receive Date: 20241106
  Receipt Date: 20241106
  Transmission Date: 20250114
  Serious: Yes (Other)
  Sender: PACIRA
  Company Number: US-ORG100016242-2024000641

PATIENT
  Sex: Male

DRUGS (1)
  1. EXPAREL [Suspect]
     Active Substance: BUPIVACAINE
     Indication: Nail operation
     Dosage: NOT PROVIDED
     Route: 065
     Dates: start: 2024, end: 2024

REACTIONS (1)
  - Administration site necrosis [Unknown]

NARRATIVE: CASE EVENT DATE: 20240101
